FAERS Safety Report 8989771 (Version 1)
Quarter: 2012Q4

REPORT INFORMATION
  Report Type: 
  Country: GB (occurrence: GB)
  Receive Date: 20121228
  Receipt Date: 20121228
  Transmission Date: 20130627
  Serious: Yes (Life-Threatening, Disabling)
  Sender: FDA-Public Use
  Company Number: GB-MYLANLABS-2012S1026036

PATIENT
  Age: 34 Year
  Sex: Female
  Weight: 98.42 kg

DRUGS (2)
  1. VENLAFAXINE [Suspect]
     Indication: DEPRESSION
     Route: 048
     Dates: start: 20111201
  2. CONTRACEPTIVE [Concomitant]
     Indication: PRODUCT USED FOR UNKNOWN INDICATION

REACTIONS (31)
  - Depression [Recovered/Resolved]
  - Pain in extremity [Recovered/Resolved]
  - Arthralgia [Recovered/Resolved]
  - Acne [Recovered/Resolved]
  - Alcoholism [Recovered/Resolved]
  - Anger [Recovered/Resolved]
  - Anxiety [Recovered/Resolved]
  - Cognitive disorder [Recovered/Resolved]
  - Confusional state [Recovered/Resolved]
  - Coordination abnormal [Recovered/Resolved]
  - Diarrhoea [Recovered/Resolved]
  - Dizziness [Recovered/Resolved]
  - Dry mouth [Recovered/Resolved]
  - Fatigue [Recovered/Resolved]
  - Headache [Recovered/Resolved]
  - Hot flush [Recovered/Resolved]
  - Memory impairment [Recovered/Resolved]
  - Nausea [Recovered/Resolved]
  - Nightmare [Recovered/Resolved]
  - Hypoaesthesia [Recovered/Resolved]
  - Somnolence [Recovered/Resolved]
  - Speech disorder [Recovered/Resolved]
  - Gastric disorder [Unknown]
  - Food craving [Recovered/Resolved]
  - Depression suicidal [Recovered/Resolved]
  - Sweat gland disorder [Recovered/Resolved]
  - Tearfulness [Recovered/Resolved]
  - Tremor [Recovered/Resolved]
  - Abnormal dreams [Recovered/Resolved]
  - Weight increased [Unknown]
  - Withdrawal syndrome [Recovered/Resolved]
